FAERS Safety Report 5139966-3 (Version None)
Quarter: 2006Q4

REPORT INFORMATION
  Report Type: 
  Country: None (occurrence: None)
  Receive Date: 20061031
  Receipt Date: 20061017
  Transmission Date: 20070319
  Serious: Yes (Hospitalization)
  Sender: FDA-Public Use
  Company Number: FR-JNJFOC-20060803416

PATIENT
  Sex: Male

DRUGS (2)
  1. ACETAMINOPHEN AND TRAMADOL HCL [Suspect]
     Indication: PROCEDURAL PAIN
     Route: 048
  2. LOVENOX [Concomitant]
     Indication: LIGAMENT OPERATION
     Route: 058

REACTIONS (2)
  - DUODENAL ULCER [None]
  - GASTRITIS EROSIVE [None]
